FAERS Safety Report 8808492 (Version 1)
Quarter: 2012Q4

REPORT INFORMATION
  Report Type: Spontaneous
  Country: US (occurrence: None)
  Receive Date: 20120920
  Receipt Date: 20120920
  Transmission Date: 20130627
  Serious: Yes (Other)
  Sender: FDA-Public Use
  Company Number: None

PATIENT
  Age: 40 Year
  Sex: Female

DRUGS (1)
  1. CELEBREX [Suspect]
     Indication: BACK PAIN
     Dosage: 200 mg 2 times per day po 1st daily, then as needed.
     Route: 048
     Dates: start: 20120801, end: 20120919

REACTIONS (3)
  - Pain in extremity [None]
  - Arthralgia [None]
  - Crying [None]
